FAERS Safety Report 18038373 (Version 1)
Quarter: 2020Q3

REPORT INFORMATION
  Report Type: Spontaneous
  Country: DE (occurrence: DE)
  Receive Date: 20200717
  Receipt Date: 20200717
  Transmission Date: 20201103
  Serious: Yes (Other)
  Sender: FDA-Public Use
  Company Number: NVSC2020DE200100

PATIENT
  Age: 55 Year
  Sex: Male

DRUGS (2)
  1. NOVAMINSULFON 500 ?1 A PHARMA 500 MG FILMTABLETTEN [Suspect]
     Active Substance: METAMIZOLE SODIUM
     Indication: PRODUCT USED FOR UNKNOWN INDICATION
     Dosage: 12X50ST.
     Route: 065
     Dates: start: 20191009
  2. DOXEPIN 50 ? 1 A PHARMA [Suspect]
     Active Substance: DOXEPIN
     Indication: PRODUCT USED FOR UNKNOWN INDICATION
     Dosage: 10X100 ST.
     Route: 065
     Dates: start: 20191009

REACTIONS (1)
  - Drug abuse [Unknown]
